FAERS Safety Report 25838645 (Version 1)
Quarter: 2025Q3

REPORT INFORMATION
  Report Type: Spontaneous
  Country: US (occurrence: US)
  Receive Date: 20250924
  Receipt Date: 20250924
  Transmission Date: 20251021
  Serious: No
  Sender: BIOGEN
  Company Number: US-BIOGEN-2025BI01324611

PATIENT

DRUGS (1)
  1. ZURZUVAE [Suspect]
     Active Substance: ZURANOLONE
     Indication: Product used for unknown indication
     Route: 050

REACTIONS (4)
  - Mobility decreased [Unknown]
  - Speech disorder [Unknown]
  - Hypersensitivity [Unknown]
  - Anxiety [Unknown]
